FAERS Safety Report 9282425 (Version 2)
Quarter: 2013Q2

REPORT INFORMATION
  Report Type: Spontaneous
  Country: US (occurrence: None)
  Receive Date: 20130506
  Receipt Date: 20130529
  Transmission Date: 20140414
  Serious: Yes (Other)
  Sender: FDA-Public Use
  Company Number: 2013SA044044

PATIENT
  Age: 26 Year
  Sex: Male
  Weight: 100 kg

DRUGS (1)
  1. GOLD BOND [Suspect]
     Indication: SKIN IRRITATION
     Dates: start: 20130406, end: 20130410

REACTIONS (4)
  - Application site burn [None]
  - Application site scab [None]
  - Skin disorder [None]
  - Application site rash [None]
